FAERS Safety Report 7582477-6 (Version None)
Quarter: 2011Q2

REPORT INFORMATION
  Report Type: 
  Country: None (occurrence: None)
  Receive Date: 20110623
  Receipt Date: 20110610
  Transmission Date: 20111010
  Serious: Yes (Hospitalization)
  Sender: FDA-Public Use
  Company Number: 1000021680

PATIENT
  Age: 84 Year
  Sex: Female

DRUGS (7)
  1. ARICEPT [Concomitant]
  2. ASPIRIN [Concomitant]
  3. LANGORAN (ISOSORBIDE DINITRATE) [Concomitant]
  4. ZANIDIP (LERCANIDIPINE) [Concomitant]
  5. CANDESARTAN CILEXETIL [Concomitant]
  6. LIPANTHYL (FENOFIBRATE) (TABLETS) [Concomitant]
  7. ESCITALOPRAM [Suspect]
     Indication: DEPRESSION
     Dosage: 10 MG (10 MG, 1 IN 1 D), ORAL
     Route: 048
     Dates: start: 20100402, end: 20100404

REACTIONS (3)
  - GRAND MAL CONVULSION [None]
  - LOSS OF CONSCIOUSNESS [None]
  - NAUSEA [None]
